FAERS Safety Report 6822469-5 (Version None)
Quarter: 2010Q3

REPORT INFORMATION
  Report Type: 
  Country: None (occurrence: None)
  Receive Date: 20100708
  Receipt Date: 20100702
  Transmission Date: 20110219
  Serious: Yes (Hospitalization)
  Sender: FDA-Public Use
  Company Number: FR-BRISTOL-MYERS SQUIBB COMPANY-15177884

PATIENT
  Age: 4 Decade
  Sex: Male

DRUGS (3)
  1. ABILIFY [Suspect]
     Indication: SCHIZOPHRENIA
     Dosage: REINTRODUCED AT 20 MG/D
     Route: 048
  2. ZYPREXA [Suspect]
     Indication: SCHIZOPHRENIA
  3. RISPERDAL [Suspect]

REACTIONS (3)
  - INTESTINAL OBSTRUCTION [None]
  - MANIA [None]
  - NEUROLEPTIC MALIGNANT SYNDROME [None]
